FAERS Safety Report 4600060-9 (Version None)
Quarter: 2005Q1

REPORT INFORMATION
  Report Type: 
  Country: None (occurrence: None)
  Receive Date: 20050303
  Receipt Date: 20050222
  Transmission Date: 20050727
  Serious: Yes (Hospitalization)
  Sender: FDA-Public Use
  Company Number: FRWYE445922FEB05

PATIENT
  Age: 84 Year
  Sex: Male

DRUGS (4)
  1. EFFEXOR [Suspect]
     Indication: DYSTHYMIC DISORDER
     Dosage: ORAL
     Route: 048
     Dates: start: 20031007
  2. DOGMATIL (SULPIRIDE) [Concomitant]
  3. PROKINYL (METOCLOPRAMIDE HYDROCHLORIDE) [Concomitant]
  4. EUPANTOL (PANTOPRAZOLE) [Concomitant]

REACTIONS (2)
  - DYSPHAGIA [None]
  - PARKINSONISM [None]
